FAERS Safety Report 10637516 (Version 2)
Quarter: 2014Q4

REPORT INFORMATION
  Report Type: Spontaneous
  Country: US (occurrence: US)
  Receive Date: 20141208
  Receipt Date: 20141208
  Transmission Date: 20150529
  Serious: Yes (Other)
  Sender: FDA-Public Use
  Company Number: US-PFIZER INC-2014008661

PATIENT
  Age: 51 Year
  Sex: Female
  Weight: 52 kg

DRUGS (2)
  1. EFFEXOR XR [Suspect]
     Active Substance: VENLAFAXINE HYDROCHLORIDE
     Indication: DEPRESSION
     Dosage: 300 MG, DAILY
     Dates: start: 2007, end: 201409
  2. EFFEXOR XR [Suspect]
     Active Substance: VENLAFAXINE HYDROCHLORIDE
     Indication: BIPOLAR DISORDER

REACTIONS (4)
  - Hypertension [Unknown]
  - Cerebrovascular accident [Unknown]
  - Drug ineffective [Unknown]
  - Transient ischaemic attack [Unknown]

NARRATIVE: CASE EVENT DATE: 2014
